FAERS Safety Report 9752627 (Version 1)
Quarter: 2013Q4

REPORT INFORMATION
  Report Type: Spontaneous
  Country: ES (occurrence: None)
  Receive Date: 20131211
  Receipt Date: 20131211
  Transmission Date: 20140711
  Serious: Yes (Other)
  Sender: FDA-Public Use
  Company Number: AUR-APL-2013-10279

PATIENT
  Age: 59 Year
  Sex: Female

DRUGS (1)
  1. LEVOFLOXACIN (LEVOFLOXACIN) [Suspect]
     Indication: RESPIRATORY TRACT INFECTION

REACTIONS (2)
  - Autoimmune hepatitis [None]
  - Drug-induced liver injury [None]
